FAERS Safety Report 9123667 (Version 7)
Quarter: 2014Q2

REPORT INFORMATION
  Report Type: Spontaneous
  Country: US (occurrence: US)
  Receive Date: 20130114
  Receipt Date: 20140625
  Transmission Date: 20141212
  Serious: Yes (Disabling)
  Sender: FDA-Public Use
  Company Number: US-009507513-1111USA02762

PATIENT
  Sex: Male
  Weight: 81.18 kg

DRUGS (1)
  1. PROPECIA [Suspect]
     Indication: ANDROGENETIC ALOPECIA
     Dosage: 1 MG, QD
     Route: 048
     Dates: start: 20100824, end: 201111

REACTIONS (18)
  - Loss of libido [Not Recovered/Not Resolved]
  - Depression [Recovered/Resolved]
  - Ejaculation failure [Not Recovered/Not Resolved]
  - Testicular atrophy [Unknown]
  - Hair transplant [Unknown]
  - Penis disorder [Unknown]
  - Gastrooesophageal reflux disease [Unknown]
  - Genital hypoaesthesia [Unknown]
  - Sexual dysfunction [Unknown]
  - Androgen deficiency [Not Recovered/Not Resolved]
  - Psychiatric symptom [Unknown]
  - Penis disorder [Unknown]
  - Fatigue [Unknown]
  - Weight increased [Unknown]
  - Orgasm abnormal [Not Recovered/Not Resolved]
  - Male genital atrophy [Not Recovered/Not Resolved]
  - Anxiety [Not Recovered/Not Resolved]
  - Organic erectile dysfunction [Not Recovered/Not Resolved]
